FAERS Safety Report 10286899 (Version 1)
Quarter: 2014Q3

REPORT INFORMATION
  Report Type: Spontaneous
  Country: US (occurrence: US)
  Receive Date: 20140709
  Receipt Date: 20140709
  Transmission Date: 20150326
  Serious: No
  Sender: FDA-Public Use
  Company Number: US-ASTRAZENECA-2014SE28072

PATIENT
  Age: 85 Year
  Sex: Male
  Weight: 47.6 kg

DRUGS (4)
  1. IRON SUPPLEMENT [Concomitant]
     Active Substance: IRON
     Indication: MINERAL SUPPLEMENTATION
     Dosage: 2 TABS TID
     Route: 048
  2. QUETIAPINE FUMARATE. [Suspect]
     Active Substance: QUETIAPINE FUMARATE
     Indication: DEMENTIA OF THE ALZHEIMER^S TYPE, WITH DELUSIONS
     Route: 048
     Dates: start: 20140417, end: 20140418
  3. PROAIR HFA [Concomitant]
     Active Substance: ALBUTEROL SULFATE
     Indication: CHRONIC OBSTRUCTIVE PULMONARY DISEASE
     Dosage: 2 PUFFS PRN
     Route: 055
     Dates: start: 1997
  4. SIMVASTATIN. [Concomitant]
     Active Substance: SIMVASTATIN
     Indication: BLOOD CHOLESTEROL
     Route: 048
     Dates: start: 1997

REACTIONS (4)
  - Intentional product misuse [Unknown]
  - Agitation [Unknown]
  - Paranoia [Unknown]
  - Confusional state [Unknown]

NARRATIVE: CASE EVENT DATE: 20140418
